FAERS Safety Report 15285792 (Version 1)
Quarter: 2018Q3

REPORT INFORMATION
  Report Type: Spontaneous
  Country: GB (occurrence: GB)
  Receive Date: 20180816
  Receipt Date: 20180816
  Transmission Date: 20181010
  Serious: Yes (Death, Hospitalization)
  Sender: FDA-Public Use
  Company Number: GB-TEVA-2018-GB-941866

PATIENT
  Age: 75 Year
  Sex: Female
  Weight: 107 kg

DRUGS (4)
  1. LATANOPROST. [Concomitant]
     Active Substance: LATANOPROST
  2. NEFOPAM [Concomitant]
     Active Substance: NEFOPAM
  3. DONEPEZIL HYDROCHLORIDE. [Suspect]
     Active Substance: DONEPEZIL HYDROCHLORIDE
     Indication: DEMENTIA ALZHEIMER^S TYPE
     Dosage: 10 MILLIGRAM DAILY;
     Route: 048
     Dates: start: 20180606, end: 20180702
  4. TEMAZEPAM. [Concomitant]
     Active Substance: TEMAZEPAM

REACTIONS (5)
  - Hypotension [Fatal]
  - Sinus bradycardia [Fatal]
  - Vomiting [Fatal]
  - Death [Fatal]
  - Nausea [Fatal]

NARRATIVE: CASE EVENT DATE: 20180629
